FAERS Safety Report 7286533-1 (Version None)
Quarter: 2011Q1

REPORT INFORMATION
  Report Type: 
  Country: None (occurrence: None)
  Receive Date: 20110210
  Receipt Date: 20110128
  Transmission Date: 20110831
  Serious: Yes (Other)
  Sender: FDA-Public Use
  Company Number: DE-CEPHALON-2011000010

PATIENT
  Age: 86 Year
  Sex: Female

DRUGS (3)
  1. BENDAMUSTINE HCL [Suspect]
     Indication: MULTIPLE MYELOMA
  2. BORTEZOMIB [Concomitant]
  3. MELPHALAN [Concomitant]

REACTIONS (5)
  - RASH PAPULAR [None]
  - GENERALISED ERYTHEMA [None]
  - BURNING SENSATION [None]
  - FEELING HOT [None]
  - SWELLING [None]
